FAERS Safety Report 11067993 (Version 1)
Quarter: 2015Q2

REPORT INFORMATION
  Report Type: Report from Study
  Country: JP (occurrence: JP)
  Receive Date: 20150427
  Receipt Date: 20150427
  Transmission Date: 20150821
  Serious: Yes (Other)
  Sender: FDA-Public Use
  Company Number: JP-SHIONOGI, INC-2015000507

PATIENT
  Age: 4 Year
  Sex: Male
  Weight: 15 kg

DRUGS (3)
  1. AMIKACIN SULFATE. [Concomitant]
     Active Substance: AMIKACIN SULFATE
     Indication: SEPSIS
     Dosage: 70 MG, QD
     Route: 065
     Dates: start: 20141126, end: 20141128
  2. GRAN [Concomitant]
     Active Substance: FILGRASTIM
     Indication: ACUTE LYMPHOCYTIC LEUKAEMIA
     Dosage: 100 ?G, QD
     Route: 065
     Dates: start: 20141126, end: 20141208
  3. FINIBAX [Suspect]
     Active Substance: DORIPENEM MONOHYDRATE
     Indication: SEPSIS
     Dosage: 250 MG, TID
     Route: 041
     Dates: start: 20141126, end: 20141205

REACTIONS (1)
  - Hepatic function abnormal [Recovering/Resolving]

NARRATIVE: CASE EVENT DATE: 20141128
